FAERS Safety Report 25183914 (Version 1)
Quarter: 2025Q2

REPORT INFORMATION
  Report Type: Report from Study
  Country: AR (occurrence: AR)
  Receive Date: 20250410
  Receipt Date: 20250410
  Transmission Date: 20250717
  Serious: Yes (Other)
  Sender: AMGEN
  Company Number: AR-AMGEN-ARGSL2024195374

PATIENT
  Age: 53 Year
  Sex: Female

DRUGS (1)
  1. VECTIBIX [Suspect]
     Active Substance: PANITUMUMAB
     Indication: Colorectal cancer
     Route: 065
     Dates: start: 20240920

REACTIONS (12)
  - Hepatic lesion [Unknown]
  - Metastases to lung [Unknown]
  - Drug ineffective [Unknown]
  - Abdominal discomfort [Unknown]
  - Skin burning sensation [Unknown]
  - Malaise [Unknown]
  - Acne [Unknown]
  - Depressed mood [Unknown]
  - Therapy interrupted [Unknown]
  - Computerised tomogram abnormal [Recovering/Resolving]
  - Diarrhoea [Unknown]
  - Vomiting [Unknown]

NARRATIVE: CASE EVENT DATE: 20240101
